FAERS Safety Report 6779928-3 (Version None)
Quarter: 2010Q2

REPORT INFORMATION
  Report Type: 
  Country: None (occurrence: None)
  Receive Date: 20100618
  Receipt Date: 20100614
  Transmission Date: 20101027
  Serious: Yes (Life-Threatening, Hospitalization, Other)
  Sender: FDA-Public Use
  Company Number: IT-ROXANE LABORATORIES, INC.-2010-RO-00710RO

PATIENT
  Age: 87 Year
  Sex: Female

DRUGS (13)
  1. LACTULOSE [Suspect]
     Indication: CONSTIPATION PROPHYLAXIS
  2. FUROSEMIDE [Suspect]
  3. CALCIUM GLUCONATE [Suspect]
     Indication: ELECTROLYTE IMBALANCE
     Dosage: 10 ML
     Route: 042
  4. SORBITOL [Suspect]
     Indication: CONSTIPATION PROPHYLAXIS
  5. VALSARTAN/HYDROCHLOROTHIAZIDE [Suspect]
  6. ASPIRIN [Suspect]
     Dosage: 100 MG
  7. BROMAZEPAM [Suspect]
  8. POTASSIUM CHLORIDE [Suspect]
     Indication: ELECTROLYTE IMBALANCE
     Dosage: 60 MEQ
     Route: 042
  9. SODIUM CHLORIDE [Suspect]
     Indication: ELECTROLYTE IMBALANCE
     Dosage: 40 MEQ
     Route: 042
  10. CEFTRIAXONE [Suspect]
     Dosage: 2 G
  11. LEVOFLOXACIN [Suspect]
     Dosage: 500 MG
     Route: 042
  12. ALBUMIN (HUMAN) [Suspect]
     Indication: ELECTROLYTE IMBALANCE
     Route: 042
  13. ENOXAPARIN SODIUM [Suspect]
     Dosage: 4000 U
     Route: 058

REACTIONS (4)
  - DELIRIUM [None]
  - ELECTROLYTE IMBALANCE [None]
  - PLEURAL EFFUSION [None]
  - RHABDOMYOLYSIS [None]
